FAERS Safety Report 5478125-1 (Version None)
Quarter: 2007Q4

REPORT INFORMATION
  Report Type: 
  Country: None (occurrence: None)
  Receive Date: 20071005
  Receipt Date: 20070926
  Transmission Date: 20080405
  Serious: Yes (Hospitalization, Other)
  Sender: FDA-Public Use
  Company Number: NL-AMGEN-US218592

PATIENT
  Sex: Male

DRUGS (2)
  1. ENBREL [Suspect]
     Indication: PSORIASIS
     Route: 065
     Dates: end: 20060610
  2. UNSPECIFIED ANTIDIABETIC AGENT [Concomitant]
     Route: 065

REACTIONS (2)
  - ENCEPHALOPATHY [None]
  - HEPATIC FAILURE [None]
